FAERS Safety Report 8813298 (Version 1)
Quarter: 2012Q4

REPORT INFORMATION
  Report Type: 
  Country: US (occurrence: US)
  Receive Date: 20120927
  Receipt Date: 20120927
  Transmission Date: 20130627
  Serious: No
  Sender: FDA-Public Use
  Company Number: US-AMGEN-USASP2012053826

PATIENT
  Age: 72 Year
  Sex: Female

DRUGS (3)
  1. PROLIA [Suspect]
     Indication: OSTEOPOROSIS
     Dosage: 60 mg, q6mo
     Route: 058
  2. CALCIUM [Concomitant]
  3. VITAMIN D /00107901/ [Concomitant]

REACTIONS (2)
  - Paraesthesia [Recovered/Resolved]
  - Osteoporosis [Unknown]
